FAERS Safety Report 6551669-7 (Version None)
Quarter: 2010Q1

REPORT INFORMATION
  Report Type: 
  Country: None (occurrence: None)
  Receive Date: 20100120
  Receipt Date: 20100108
  Transmission Date: 20100710
  Serious: Yes (Other)
  Sender: FDA-Public Use
  Company Number: 230028J10USA

PATIENT
  Age: 44 Year
  Sex: Female

DRUGS (4)
  1. REBIF [Suspect]
     Indication: MULTIPLE SCLEROSIS
     Dosage: 8.8 MG, 3 IN 1 WEEKS, SUBCUTANEOUS; 22 MCG, 3 IN 1 WEEKS, SUBCUTANEOUS
     Route: 058
     Dates: start: 20091218, end: 20100101
  2. REBIF [Suspect]
     Indication: MULTIPLE SCLEROSIS
     Dosage: 8.8 MG, 3 IN 1 WEEKS, SUBCUTANEOUS; 22 MCG, 3 IN 1 WEEKS, SUBCUTANEOUS
     Route: 058
     Dates: start: 20100101, end: 20100106
  3. ZOLOFT [Suspect]
     Indication: ANXIETY
     Dosage: 25 MG
     Dates: start: 20091201, end: 20100104
  4. KLONOPIN [Concomitant]

REACTIONS (12)
  - ANXIETY [None]
  - CHOKING SENSATION [None]
  - CONDITION AGGRAVATED [None]
  - DRUG HYPERSENSITIVITY [None]
  - FEELING ABNORMAL [None]
  - HYPOAESTHESIA ORAL [None]
  - LAZINESS [None]
  - MULTIPLE SCLEROSIS [None]
  - SENSATION OF HEAVINESS [None]
  - SLEEP DISORDER [None]
  - STEVENS-JOHNSON SYNDROME [None]
  - STRESS [None]
